FAERS Safety Report 18309164 (Version 6)
Quarter: 2022Q1

REPORT INFORMATION
  Report Type: Spontaneous
  Country: CA (occurrence: CA)
  Receive Date: 20200925
  Receipt Date: 20220304
  Transmission Date: 20220423
  Serious: Yes (Other)
  Sender: FDA-Public Use
  Company Number: CA-CELLTRION INC.-2020CA028103

PATIENT

DRUGS (6)
  1. INFLECTRA [Suspect]
     Active Substance: INFLIXIMAB-DYYB
     Indication: Rheumatoid arthritis
     Dosage: 300 MG, EVERY 6 WEEKS
     Route: 042
     Dates: start: 20200806
  2. INFLECTRA [Suspect]
     Active Substance: INFLIXIMAB-DYYB
     Dosage: 300 MG,  EVERY 6 WEEKS
     Route: 042
     Dates: start: 20200917
  3. INFLECTRA [Suspect]
     Active Substance: INFLIXIMAB-DYYB
     Dosage: 300 MG,  EVERY 6 WEEKS
     Route: 042
     Dates: start: 20210415, end: 20210415
  4. INFLECTRA [Suspect]
     Active Substance: INFLIXIMAB-DYYB
     Dosage: 300 MG,  EVERY 6 WEEKS
     Route: 042
     Dates: start: 20210616
  5. INFLECTRA [Suspect]
     Active Substance: INFLIXIMAB-DYYB
     Dosage: 300 MG,  EVERY 6 WEEKS
     Route: 042
     Dates: start: 20220111
  6. INFLECTRA [Suspect]
     Active Substance: INFLIXIMAB-DYYB
     Dosage: 300 MG,  EVERY 6 WEEKS
     Route: 042
     Dates: start: 20220222

REACTIONS (7)
  - Rheumatoid arthritis [Unknown]
  - Hip fracture [Unknown]
  - Nausea [Unknown]
  - Malaise [Unknown]
  - Off label use [Unknown]
  - Off label use [Unknown]
  - Intentional product use issue [Unknown]

NARRATIVE: CASE EVENT DATE: 20200806
